FAERS Safety Report 19615217 (Version 2)
Quarter: 2021Q3

REPORT INFORMATION
  Report Type: Report from Study
  Country: US (occurrence: US)
  Receive Date: 20210727
  Receipt Date: 20210803
  Transmission Date: 20211014
  Serious: Yes (Death, Life-Threatening)
  Sender: FDA-Public Use
  Company Number: US-EXELIXIS-CABO-21042740

PATIENT
  Age: 83 Year
  Sex: Male

DRUGS (1)
  1. CABOMETYX [Suspect]
     Active Substance: CABOZANTINIB S-MALATE
     Indication: PRODUCT USED FOR UNKNOWN INDICATION
     Dosage: 60 MG, QD
     Route: 048
     Dates: start: 202107

REACTIONS (9)
  - Loss of personal independence in daily activities [Unknown]
  - Decreased appetite [Unknown]
  - Death [Fatal]
  - Terminal state [Unknown]
  - Fatigue [Unknown]
  - Delirium [Unknown]
  - Weight decreased [Unknown]
  - Peripheral swelling [Unknown]
  - Malignant neoplasm progression [Unknown]

NARRATIVE: CASE EVENT DATE: 202107
